FAERS Safety Report 4288640-4 (Version None)
Quarter: 2004Q1

REPORT INFORMATION
  Report Type: 
  Country: None (occurrence: None)
  Receive Date: 20040205
  Receipt Date: 20040107
  Transmission Date: 20041129
  Serious: Yes (Hospitalization)
  Sender: FDA-Public Use
  Company Number: B01200302638

PATIENT
  Age: 65 Year
  Sex: Female

DRUGS (9)
  1. (OXALIPLATIN) - SOLUTION - 100 MG/M2 [Suspect]
     Indication: COLORECTAL CANCER
     Dosage: 100 MG/M2 Q3W, 150 MG/M2; INTRAVENOUS NOS
     Route: 042
     Dates: start: 20031002, end: 20031002
  2. FLUOROURACIL [Suspect]
     Dosage: 150 MG/M2; INTRAVENOUS NOS
     Route: 042
     Dates: start: 20030911, end: 20031016
  3. DILAUDID [Concomitant]
  4. MS CONTIN [Concomitant]
  5. PEPCID [Concomitant]
  6. ATIVAN [Concomitant]
  7. KYTRIL (GRAINSETRON) [Concomitant]
  8. INSULIN [Concomitant]
  9. MAVIK [Concomitant]

REACTIONS (6)
  - ACINETOBACTER INFECTION [None]
  - CATHETER RELATED INFECTION [None]
  - DISEASE PROGRESSION [None]
  - DRUG TOXICITY [None]
  - PSEUDOMONAS INFECTION [None]
  - SEPSIS [None]
